FAERS Safety Report 18682348 (Version 1)
Quarter: 2020Q4

REPORT INFORMATION
  Report Type: Spontaneous
  Country: GB (occurrence: GB)
  Receive Date: 20201230
  Receipt Date: 20201230
  Transmission Date: 20210114
  Serious: Yes (Hospitalization)
  Sender: FDA-Public Use
  Company Number: GB-CELLTRION INC.-2020GB034692

PATIENT

DRUGS (1)
  1. REMSIMA [Suspect]
     Active Substance: INFLIXIMAB
     Indication: RHEUMATOID ARTHRITIS
     Dosage: 120 MG, EVERY 2 WEEKS
     Route: 058

REACTIONS (4)
  - Oedema [Unknown]
  - Lower respiratory tract infection [Unknown]
  - Pleural effusion [Unknown]
  - Unevaluable event [Unknown]
